FAERS Safety Report 20012791 (Version 1)
Quarter: 2021Q4

REPORT INFORMATION
  Report Type: Spontaneous
  Country: NL (occurrence: NL)
  Receive Date: 20211029
  Receipt Date: 20211029
  Transmission Date: 20220303
  Serious: Yes (Other)
  Sender: FDA-Public Use
  Company Number: None

PATIENT
  Sex: Male
  Weight: 87 kg

DRUGS (1)
  1. DULOXETINE [Suspect]
     Active Substance: DULOXETINE
     Indication: Depression
     Dosage: 30 MILLIGRAM DAILY;
     Route: 065
     Dates: start: 202102

REACTIONS (4)
  - Hallucination [Recovered/Resolved]
  - Hypnagogic hallucination [Recovered/Resolved]
  - Hallucinations, mixed [Recovered/Resolved]
  - Anxiety [Recovered/Resolved]
